FAERS Safety Report 4351911-7 (Version None)
Quarter: 2004Q2

REPORT INFORMATION
  Report Type: 
  Country: None (occurrence: None)
  Receive Date: 20040429
  Receipt Date: 20040106
  Transmission Date: 20050107
  Serious: No
  Sender: FDA-Public Use
  Company Number: 2004-112176-NL

PATIENT
  Age: 26 Year
  Sex: Female
  Weight: 62.7 kg

DRUGS (4)
  1. NUVARING [Suspect]
     Indication: CONTRACEPTION
     Dosage: DR DAILY VAGINAL
     Route: 067
     Dates: start: 20030601, end: 20030701
  2. NUVARING [Suspect]
     Indication: CONTRACEPTION
     Dosage: DF DAILY VAGINAL
     Route: 067
     Dates: start: 20040101
  3. EFFEXOR [Concomitant]
  4. IBUPROFEN [Concomitant]

REACTIONS (5)
  - GENITAL PRURITUS FEMALE [None]
  - HEADACHE [None]
  - METRORRHAGIA [None]
  - VAGINAL BURNING SENSATION [None]
  - VULVOVAGINAL DISCOMFORT [None]
